FAERS Safety Report 8586689-4 (Version None)
Quarter: 2012Q3

REPORT INFORMATION
  Report Type: 
  Country: None (occurrence: None)
  Receive Date: 20120810
  Receipt Date: 20120803
  Transmission Date: 20120928
  Serious: Yes (Other)
  Sender: FDA-Public Use
  Company Number: PHHY2011US33954

PATIENT
  Age: 22 Year
  Sex: Female

DRUGS (2)
  1. NEORAL [Suspect]
     Indication: THROMBOTIC THROMBOCYTOPENIC PURPURA
  2. NEORAL [Suspect]
     Dosage: UNK

REACTIONS (3)
  - MATERNAL EXPOSURE DURING PREGNANCY [None]
  - BLOOD THROMBOPLASTIN DECREASED [None]
  - PRE-ECLAMPSIA [None]
